FAERS Safety Report 10466106 (Version 1)
Quarter: 2014Q3

REPORT INFORMATION
  Report Type: Spontaneous
  Country: GB (occurrence: GB)
  Receive Date: 20140922
  Receipt Date: 20140922
  Transmission Date: 20150326
  Serious: Yes (Hospitalization, Other)
  Sender: FDA-Public Use
  Company Number: GB-UCBSA-2014012064

PATIENT
  Sex: Female

DRUGS (1)
  1. KEPPRA [Suspect]
     Active Substance: LEVETIRACETAM
     Indication: PRODUCT USED FOR UNKNOWN INDICATION
     Dosage: DOSE UNKNOWN
     Dates: start: 2014

REACTIONS (4)
  - Brain neoplasm [Unknown]
  - Tremor [Unknown]
  - Memory impairment [Unknown]
  - Sensory loss [Unknown]

NARRATIVE: CASE EVENT DATE: 2014
